FAERS Safety Report 19661284 (Version 7)
Quarter: 2024Q1

REPORT INFORMATION
  Report Type: Spontaneous
  Country: PL (occurrence: PL)
  Receive Date: 20210805
  Receipt Date: 20240109
  Transmission Date: 20240410
  Serious: Yes (Death, Other)
  Sender: FDA-Public Use
  Company Number: PL-SUN PHARMACEUTICAL INDUSTRIES LTD-2021RR-279482

PATIENT
  Age: 54 Year
  Sex: Female

DRUGS (8)
  1. GEMCITABINE [Suspect]
     Active Substance: GEMCITABINE
     Indication: Breast cancer metastatic
     Dosage: 1 CYCLICAL (ON DAYS 1 AND 8 OF THE CYCLE)
     Route: 065
     Dates: start: 201707
  2. CARBOPLATIN [Suspect]
     Active Substance: CARBOPLATIN
     Indication: Breast cancer metastatic
     Dosage: CYCLICAL
     Route: 065
  3. CAPECITABINE [Suspect]
     Active Substance: CAPECITABINE
     Indication: Breast cancer metastatic
     Dosage: CYCLICAL (AREA UNDER THE CURVE (AUC) 2, ON DAYS 1 AND 8 OF THE CYCLE)
     Route: 065
     Dates: start: 201707
  4. CAPECITABINE [Suspect]
     Active Substance: CAPECITABINE
     Dosage: CYCLICAL (3 CYCLES)
     Route: 065
     Dates: start: 201904
  5. PEMBROLIZUMAB [Suspect]
     Active Substance: PEMBROLIZUMAB
     Indication: Breast cancer metastatic
     Dosage: 200MG, Q3W (DAY 1 OF EACH CYCLE EVERY 21 DAY)
     Route: 065
     Dates: start: 201707
  6. PEMBROLIZUMAB [Suspect]
     Active Substance: PEMBROLIZUMAB
     Dosage: 200 MILLIGRAM
     Route: 065
  7. ZOLEDRONIC ACID [Concomitant]
     Active Substance: ZOLEDRONIC ACID
     Indication: Osteolysis
     Dosage: UNK
     Route: 065
     Dates: start: 2017
  8. PREDNISONE [Concomitant]
     Active Substance: PREDNISONE
     Indication: Rash
     Dosage: 10 MILLIGRAM, QW (14 DAYS)
     Route: 065

REACTIONS (4)
  - Therapy non-responder [Fatal]
  - Malignant neoplasm progression [Unknown]
  - Rash [Recovered/Resolved]
  - Off label use [Unknown]

NARRATIVE: CASE EVENT DATE: 20180601
